FAERS Safety Report 7465109-7 (Version None)
Quarter: 2011Q2

REPORT INFORMATION
  Report Type: 
  Country: None (occurrence: None)
  Receive Date: 20110509
  Receipt Date: 20110426
  Transmission Date: 20111010
  Serious: Yes (Other)
  Sender: FDA-Public Use
  Company Number: FR-JNJFOC-20110500699

PATIENT

DRUGS (8)
  1. VALPROATE SODIUM [Suspect]
     Indication: BIPOLAR DISORDER
     Route: 065
  2. ANTIPARKINSON DRUG [Concomitant]
     Indication: EXTRAPYRAMIDAL DISORDER
     Route: 065
  3. LORAZEPAM [Concomitant]
     Indication: IRRITABILITY
     Route: 065
  4. HALOPERIDOL [Suspect]
     Indication: BIPOLAR DISORDER
     Route: 065
  5. LORAZEPAM [Concomitant]
     Indication: AGITATION
     Route: 065
  6. LORAZEPAM [Concomitant]
     Indication: RESTLESSNESS
     Route: 065
  7. LORAZEPAM [Concomitant]
     Indication: HOSTILITY
     Route: 065
  8. LORAZEPAM [Concomitant]
     Indication: INSOMNIA
     Route: 065

REACTIONS (1)
  - CYTOLYTIC HEPATITIS [None]
